FAERS Safety Report 19111226 (Version 1)
Quarter: 2021Q2

REPORT INFORMATION
  Report Type: Spontaneous
  Country: NL (occurrence: NL)
  Receive Date: 20210409
  Receipt Date: 20210409
  Transmission Date: 20210717
  Serious: Yes (Hospitalization, Other)
  Sender: FDA-Public Use
  Company Number: NL-AUROBINDO-AUR-APL-2021-014762

PATIENT
  Sex: Male
  Weight: 2.9 kg

DRUGS (3)
  1. CITALOPRAM 20 MG FILM COATED TABLETS [Suspect]
     Active Substance: CITALOPRAM HYDROBROMIDE
     Indication: ANXIETY DISORDER
     Dosage: 20 MILLIGRAM, ONCE A DAY
     Route: 064
  2. METHYLPHENIDAT [Suspect]
     Active Substance: METHYLPHENIDATE
     Indication: ATTENTION DEFICIT HYPERACTIVITY DISORDER
     Dosage: 27 MILLIGRAM, ONCE A DAY
     Route: 064
  3. LABETALOL [Suspect]
     Active Substance: LABETALOL\LABETALOL HYDROCHLORIDE
     Indication: HYPERTENSION
     Dosage: 200 MILLIGRAM, 3 TIMES A DAY
     Route: 064

REACTIONS (4)
  - Neonatal hypoxia [Unknown]
  - Irritability [Unknown]
  - Hypotonia neonatal [Recovering/Resolving]
  - Pallor [Recovering/Resolving]
